FAERS Safety Report 25044205 (Version 2)
Quarter: 2025Q1

REPORT INFORMATION
  Report Type: Report from Study
  Country: GT (occurrence: GT)
  Receive Date: 20250306
  Receipt Date: 20250307
  Transmission Date: 20250408
  Serious: Yes (Hospitalization)
  Sender: BIOGEN
  Company Number: GT-BIOGEN-2025BI01299795

PATIENT
  Age: 43 Year
  Sex: Female
  Weight: 77.1 kg

DRUGS (2)
  1. TYSABRI [Suspect]
     Active Substance: NATALIZUMAB
     Indication: Relapsing multiple sclerosis
     Route: 050
     Dates: start: 20211126
  2. VITAMIN D [Concomitant]
     Active Substance: VITAMIN D NOS
     Route: 050
     Dates: start: 20211126

REACTIONS (4)
  - Multiple sclerosis [Unknown]
  - Blood glucose increased [Recovered/Resolved]
  - Pain [Recovered/Resolved]
  - Headache [Recovered/Resolved]

NARRATIVE: CASE EVENT DATE: 20221001
